FAERS Safety Report 18967096 (Version 1)
Quarter: 2021Q1

REPORT INFORMATION
  Report Type: Report from Study
  Country: None (occurrence: TW)
  Receive Date: 20210303
  Receipt Date: 20210303
  Transmission Date: 20210420
  Serious: Yes (Other)
  Sender: FDA-Public Use
  Company Number: TW-ABBVIE-21K-153-3799270-00

PATIENT
  Age: 76 Year
  Sex: Female
  Weight: 65.1 kg

DRUGS (9)
  1. COMPESOLON [Concomitant]
     Active Substance: PREDNISOLONE
     Indication: PROPHYLAXIS
     Dosage: 3 / TABLET / BID,5 DAYS PER MONTH
     Route: 048
     Dates: start: 202003
  2. JANUVIA [Concomitant]
     Active Substance: SITAGLIPTIN PHOSPHATE
     Indication: TYPE 2 DIABETES MELLITUS
     Route: 048
     Dates: start: 201906
  3. TWYNSTA [Concomitant]
     Active Substance: AMLODIPINE BESYLATE\TELMISARTAN
     Indication: HYPERTENSION
     Route: 048
     Dates: start: 201906
  4. SYNTAM [Concomitant]
     Indication: PROPHYLAXIS
     Route: 048
     Dates: start: 201906
  5. IBRUTINIB [Suspect]
     Active Substance: IBRUTINIB
     Indication: MANTLE CELL LYMPHOMA RECURRENT
     Route: 048
     Dates: start: 20191216
  6. KINAX [Concomitant]
     Active Substance: ALPRAZOLAM
     Indication: INSOMNIA
     Dosage: 2 / TABLET / QHS / PO
     Route: 048
     Dates: start: 201906
  7. FAMOTIDINE. [Concomitant]
     Active Substance: FAMOTIDINE
     Indication: GASTROINTESTINAL DISORDER THERAPY
     Route: 048
     Dates: start: 201906
  8. GLIMET [GLIMEPIRIDE;METFORMIN HYDROCHLORIDE] [Concomitant]
     Indication: TYPE 2 DIABETES MELLITUS
     Route: 048
     Dates: start: 201906
  9. ETORICOXIB. [Concomitant]
     Active Substance: ETORICOXIB
     Indication: ARTHRALGIA
     Dosage: 1 / TABLET / QDPRN / PO
     Route: 048
     Dates: start: 201906

REACTIONS (7)
  - Gastric disorder [Recovered/Resolved]
  - Vision blurred [Recovered/Resolved]
  - Hyperkalaemia [Recovered/Resolved]
  - Herpes zoster [Recovered/Resolved]
  - Blood uric acid increased [Not Recovered/Not Resolved]
  - Rash [Recovered/Resolved]
  - Lacrimation increased [Recovered/Resolved]

NARRATIVE: CASE EVENT DATE: 2020
